FAERS Safety Report 7835773-9 (Version None)
Quarter: 2011Q4

REPORT INFORMATION
  Report Type: 
  Country: None (occurrence: None)
  Receive Date: 20111024
  Receipt Date: 20111021
  Transmission Date: 20120403
  Serious: Yes (Other)
  Sender: FDA-Public Use
  Company Number: JP-PFIZER INC-2011166483

PATIENT
  Age: 73 Year
  Sex: Female
  Weight: 51.3 kg

DRUGS (6)
  1. CELECOXIB [Suspect]
     Indication: PERIARTHRITIS
     Dosage: 100 MG, 2X/DAY
     Route: 048
     Dates: start: 20110706, end: 20110719
  2. CANDESARTAN CILEXETIL [Suspect]
     Dosage: UNK
  3. CELECOXIB [Suspect]
     Indication: SPINAL OSTEOARTHRITIS
  4. LYRICA [Suspect]
     Indication: PERIARTHRITIS
     Dosage: 75 MG, 2X/DAY
     Route: 048
     Dates: start: 20110706, end: 20110719
  5. LIPITOR [Suspect]
     Dosage: UNK
  6. LYRICA [Suspect]
     Indication: SPINAL OSTEOARTHRITIS

REACTIONS (5)
  - RASH [None]
  - DIZZINESS [None]
  - PHARYNGEAL OEDEMA [None]
  - DYSPNOEA [None]
  - OEDEMA MOUTH [None]
